FAERS Safety Report 21490093 (Version 1)
Quarter: 2022Q4

REPORT INFORMATION
  Report Type: Spontaneous
  Country: US (occurrence: US)
  Receive Date: 20221021
  Receipt Date: 20221021
  Transmission Date: 20230112
  Serious: No
  Sender: FDA-Public Use
  Company Number: US-CELLTRION INC.-2022US012871

PATIENT

DRUGS (13)
  1. INFLECTRA [Suspect]
     Active Substance: INFLIXIMAB-DYYB
     Indication: Product used for unknown indication
     Dosage: 500 MG, FREQUENCY: AT 0,2,6 WEEKS AND THEN EVERY 8 WEEKS
  2. AZATHIOPRINE [Concomitant]
     Active Substance: AZATHIOPRINE
     Dosage: 3 TABLETS BY MOUTH DAILY
     Route: 048
  3. REMICADE [Concomitant]
     Active Substance: INFLIXIMAB
     Route: 042
  4. FLUOCINOLONE ACETONIDE [Concomitant]
     Active Substance: FLUOCINOLONE ACETONIDE
     Dosage: TWICE DAILY FOR 3 WEEKS THEN DAILY FOR 1-2 WEEKS THEN AS NEEDED
  5. ONDANSETRON [Concomitant]
     Active Substance: ONDANSETRON
     Dosage: 1 TABLET BY MOUTH 3 TIMES DAILY AS NEEDED
     Route: 048
  6. ONDANSETRON [Concomitant]
     Active Substance: ONDANSETRON
     Dosage: UNK UNK, TID
     Route: 048
  7. MELATONIN [Concomitant]
     Active Substance: MELATONIN
     Dosage: BY MOUTH AT BEDTIME AS NEEDED
     Route: 048
  8. MUPIROCIN [Concomitant]
     Active Substance: MUPIROCIN
     Dosage: APPLY TO AFFECTED AREA TWICE DAILY
  9. TRIAMCINOLONE ACETONIDE [Concomitant]
     Active Substance: TRIAMCINOLONE ACETONIDE
  10. CLOBETASOL [Concomitant]
     Active Substance: CLOBETASOL
     Dosage: UNK, BID
  11. FINASTERIDE [Concomitant]
     Active Substance: FINASTERIDE
     Dosage: 1 TAB BY MOUTH
     Route: 048
  12. CELEXA [Concomitant]
     Active Substance: CITALOPRAM HYDROBROMIDE
     Dosage: 1 TABLET BY MOUTH EVERY DAY
     Route: 048
  13. TAMSULOSIN HYDROCHLORIDE [Concomitant]
     Active Substance: TAMSULOSIN HYDROCHLORIDE
     Dosage: 1 CAPSULE BY MOUTH EVERY DAY
     Route: 048

REACTIONS (1)
  - Unevaluable event [Unknown]
